FAERS Safety Report 20499510 (Version 1)
Quarter: 2022Q1

REPORT INFORMATION
  Report Type: Spontaneous
  Country: US (occurrence: US)
  Receive Date: 20220222
  Receipt Date: 20220222
  Transmission Date: 20220423
  Serious: No
  Sender: FDA-Public Use
  Company Number: US-TEVA-2022-US-2002251

PATIENT
  Sex: Male
  Weight: 102 kg

DRUGS (7)
  1. LORAZEPAM [Suspect]
     Active Substance: LORAZEPAM
     Indication: Anxiety
     Route: 065
  2. LENVIMA [Concomitant]
     Active Substance: LENVATINIB
  3. VITAMIN C [Concomitant]
     Active Substance: ASCORBIC ACID
  4. BACTRIM [Concomitant]
     Active Substance: SULFAMETHOXAZOLE\TRIMETHOPRIM
  5. METFORMIN HYDROCHLORIDE [Concomitant]
     Active Substance: METFORMIN HYDROCHLORIDE
  6. GLIPIZIDE [Concomitant]
     Active Substance: GLIPIZIDE
  7. PREDNISONE [Concomitant]
     Active Substance: PREDNISONE

REACTIONS (10)
  - Insomnia [Unknown]
  - Arthralgia [Unknown]
  - Tremor [Unknown]
  - Muscle spasms [Unknown]
  - Nail injury [Unknown]
  - Nail bed bleeding [Unknown]
  - Disturbance in attention [Unknown]
  - Thinking abnormal [Unknown]
  - Magnetic resonance imaging abnormal [Unknown]
  - Blood test abnormal [Unknown]
